FAERS Safety Report 6998158-3 (Version None)
Quarter: 2010Q3

REPORT INFORMATION
  Report Type: 
  Country: None (occurrence: None)
  Receive Date: 20100920
  Receipt Date: 20100115
  Transmission Date: 20110219
  Serious: Yes (Other)
  Sender: FDA-Public Use
  Company Number: US-ASTRAZENECA-2008UW28907

PATIENT
  Age: 14450 Day
  Sex: Male
  Weight: 104.3 kg

DRUGS (14)
  1. SEROQUEL [Suspect]
     Indication: BIPOLAR DISORDER
     Route: 048
     Dates: start: 19990901, end: 20050301
  2. SEROQUEL [Suspect]
     Route: 048
     Dates: start: 20000101, end: 20040101
  3. RISPERDAL [Suspect]
     Indication: BIPOLAR DISORDER
     Route: 065
     Dates: start: 20040601, end: 20060801
  4. LANTUS [Concomitant]
     Indication: TYPE 2 DIABETES MELLITUS
     Dosage: 70 UNITS DAILY
  5. NOVOLOG [Concomitant]
     Indication: TYPE 2 DIABETES MELLITUS
  6. GLUCOPHAGE [Concomitant]
     Indication: TYPE 2 DIABETES MELLITUS
  7. ACTOS [Concomitant]
     Indication: TYPE 2 DIABETES MELLITUS
  8. ABILIFY [Concomitant]
     Dates: start: 20040101
  9. HALDOL [Concomitant]
     Dates: start: 19990101
  10. ZYPREXA [Concomitant]
     Dates: start: 20050101, end: 20070101
  11. KLONOPIN [Concomitant]
  12. CYMBALTA [Concomitant]
  13. DEPAKOTE [Concomitant]
     Indication: BIPOLAR DISORDER
     Dates: start: 20000101
  14. LIPITOR [Concomitant]
     Indication: HYPERCHOLESTEROLAEMIA
     Dates: start: 20060801

REACTIONS (3)
  - DIABETIC COMA [None]
  - OBESITY [None]
  - TYPE 2 DIABETES MELLITUS [None]
